FAERS Safety Report 13658736 (Version 1)
Quarter: 2017Q2

REPORT INFORMATION
  Report Type: Spontaneous
  Country: US (occurrence: US)
  Receive Date: 20170616
  Receipt Date: 20170616
  Transmission Date: 20170830
  Serious: No
  Sender: FDA-Public Use
  Company Number: US-BIOGEN-2017BI00416779

PATIENT
  Sex: Male

DRUGS (1)
  1. TECFIDERA [Suspect]
     Active Substance: DIMETHYL FUMARATE
     Indication: MULTIPLE SCLEROSIS
     Route: 065

REACTIONS (9)
  - Headache [Recovered/Resolved]
  - Mobility decreased [Unknown]
  - Nuclear magnetic resonance imaging abnormal [Unknown]
  - Drug ineffective [Unknown]
  - Influenza like illness [Recovered/Resolved]
  - Pain [Unknown]
  - Viral infection [Recovered/Resolved]
  - Sleep apnoea syndrome [Unknown]
  - Feeling abnormal [Unknown]

NARRATIVE: CASE EVENT DATE: 201303
